FAERS Safety Report 9940734 (Version 1)
Quarter: 2014Q1

REPORT INFORMATION
  Report Type: Spontaneous
  Country: FR (occurrence: FR)
  Receive Date: 20140303
  Receipt Date: 20140303
  Transmission Date: 20141002
  Serious: Yes (Other)
  Sender: FDA-Public Use
  Company Number: FR-JNJFOC-20140216720

PATIENT
  Age: 67 Year
  Sex: Female

DRUGS (7)
  1. REMICADE [Suspect]
     Indication: CROHN^S DISEASE
     Route: 042
     Dates: start: 2010, end: 201401
  2. POTASSIUM [Concomitant]
     Route: 065
  3. VITAMIN [Concomitant]
     Route: 065
  4. SERESTA [Concomitant]
     Route: 065
  5. VENLAFAXINE [Concomitant]
     Route: 065
  6. EXELON [Concomitant]
     Route: 065
  7. RISPERDAL [Concomitant]
     Route: 065

REACTIONS (1)
  - Progressive multifocal leukoencephalopathy [Recovering/Resolving]
